FAERS Safety Report 17899692 (Version 2)
Quarter: 2020Q2

REPORT INFORMATION
  Report Type: Report from Study
  Country: US (occurrence: US)
  Receive Date: 20200616
  Receipt Date: 20200630
  Transmission Date: 20200714
  Serious: Yes (Hospitalization)
  Sender: FDA-Public Use
  Company Number: US-ROCHE-2619225

PATIENT
  Sex: Male

DRUGS (2)
  1. COBIMETINIB. [Suspect]
     Active Substance: COBIMETINIB
     Indication: PLASMA CELL MYELOMA
     Dosage: ON 07/MAR/2020, THE PATIENT RECEIVED THE MOST RECENT DOSE OF COBIMETINIB
     Route: 048
     Dates: start: 20190425
  2. VEMURAFENIB. [Suspect]
     Active Substance: VEMURAFENIB
     Indication: PLASMA CELL MYELOMA
     Dosage: ON 07/MAR/2020, THE PATIENT RECEIVED THE MOST RECENT DOSE OF VEMURAFENIB
     Route: 048
     Dates: start: 20190425

REACTIONS (1)
  - Acute kidney injury [Not Recovered/Not Resolved]

NARRATIVE: CASE EVENT DATE: 20200307
